FAERS Safety Report 12752612 (Version 1)
Quarter: 2016Q3

REPORT INFORMATION
  Report Type: Spontaneous
  Country: US (occurrence: US)
  Receive Date: 20160916
  Receipt Date: 20160916
  Transmission Date: 20161109
  Serious: Yes (Other)
  Sender: FDA-Public Use
  Company Number: US-AMGEN-USASP2016122394

PATIENT
  Age: 79 Year
  Sex: Female

DRUGS (3)
  1. ENBREL [Suspect]
     Active Substance: ETANERCEPT
     Dosage: UNK
     Route: 065
  2. ENBREL [Suspect]
     Active Substance: ETANERCEPT
     Dosage: 50 MG, QWK
     Route: 065
  3. ENBREL [Suspect]
     Active Substance: ETANERCEPT
     Indication: PSORIASIS
     Dosage: 50 MG, 2 TIMES/WK
     Route: 065

REACTIONS (23)
  - Sputum discoloured [Unknown]
  - Upper-airway cough syndrome [Unknown]
  - Drug dose omission [Unknown]
  - Psoriasis [Unknown]
  - Psoriatic arthropathy [Unknown]
  - Ear disorder [Unknown]
  - Hypersensitivity [Unknown]
  - Incorrect product storage [Unknown]
  - Cough [Unknown]
  - Chills [Unknown]
  - Oral discomfort [Recovering/Resolving]
  - Nasal congestion [Unknown]
  - Pyrexia [Unknown]
  - Oropharyngeal pain [Unknown]
  - Infection [Unknown]
  - Eyelid disorder [Unknown]
  - Malaise [Unknown]
  - Oropharyngeal discomfort [Unknown]
  - Seasonal allergy [Unknown]
  - Headache [Unknown]
  - Visual impairment [Unknown]
  - Hypertension [Not Recovered/Not Resolved]
  - Dysphonia [Unknown]

NARRATIVE: CASE EVENT DATE: 20160908
